FAERS Safety Report 8720591 (Version 2)
Quarter: 2015Q2

REPORT INFORMATION
  Report Type: Report from Study
  Country: US (occurrence: US)
  Receive Date: 20120813
  Receipt Date: 20150407
  Transmission Date: 20150821
  Serious: Yes (Hospitalization)
  Sender: FDA-Public Use
  Company Number: US-ROCHE-1098806

PATIENT
  Age: 46 Year
  Sex: Female

DRUGS (16)
  1. LOPRESSOR [Concomitant]
     Active Substance: METOPROLOL TARTRATE
     Route: 042
     Dates: start: 19950811
  2. LOPRESSOR [Concomitant]
     Active Substance: METOPROLOL TARTRATE
     Route: 048
  3. RESTORIL [Concomitant]
     Active Substance: TEMAZEPAM
     Route: 042
  4. ACTIVASE [Suspect]
     Active Substance: ALTEPLASE
     Route: 040
  5. ACTIVASE [Suspect]
     Active Substance: ALTEPLASE
     Route: 042
  6. LOPRESSOR [Concomitant]
     Active Substance: METOPROLOL TARTRATE
     Dosage: 3 DOSES WERE GIVEN
     Route: 042
  7. ACTIVASE [Suspect]
     Active Substance: ALTEPLASE
     Route: 042
  8. HEPARIN [Concomitant]
     Active Substance: HEPARIN SODIUM
     Route: 042
     Dates: start: 19950811
  9. MORPHINE SULFATE. [Concomitant]
     Active Substance: MORPHINE SULFATE
     Dosage: 2-6 MG
     Route: 042
  10. DRAMAMINE [Concomitant]
     Active Substance: DIMENHYDRINATE
     Dosage: 26-50 MG
     Route: 065
  11. HEPARIN [Concomitant]
     Active Substance: HEPARIN SODIUM
     Dosage: INCREASED
     Route: 065
     Dates: start: 19950812
  12. ACTIVASE [Suspect]
     Active Substance: ALTEPLASE
     Indication: ACUTE MYOCARDIAL INFARCTION
     Route: 042
     Dates: start: 19950811
  13. HEPARIN [Concomitant]
     Active Substance: HEPARIN SODIUM
     Route: 042
  14. ASA [Concomitant]
     Active Substance: ASPIRIN
     Route: 048
     Dates: start: 19950811
  15. TYLENOL [Concomitant]
     Active Substance: ACETAMINOPHEN
     Dosage: 650-1000 MG
     Route: 042
  16. LOPRESSOR [Concomitant]
     Active Substance: METOPROLOL TARTRATE
     Dosage: DECREASED
     Route: 065
     Dates: start: 19950812

REACTIONS (6)
  - Anxiety [Unknown]
  - Hypoaesthesia [Recovered/Resolved]
  - Cardiac failure congestive [Unknown]
  - Sinus bradycardia [Unknown]
  - Nausea [Unknown]
  - Blood pressure increased [Recovered/Resolved]

NARRATIVE: CASE EVENT DATE: 19950811
